FAERS Safety Report 7728773-0 (Version None)
Quarter: 2011Q3

REPORT INFORMATION
  Report Type: 
  Country: None (occurrence: None)
  Receive Date: 20110906
  Receipt Date: 20110823
  Transmission Date: 20111222
  Serious: Yes (Hospitalization, Other)
  Sender: FDA-Public Use
  Company Number: HU-ELI_LILLY_AND_COMPANY-HU201107002279

PATIENT
  Age: 71 Year
  Sex: Female

DRUGS (7)
  1. BISOGAMMA [Concomitant]
  2. PREDUCTAL [Concomitant]
  3. CLOPIDOGREL [Concomitant]
  4. MEDROL [Concomitant]
     Dosage: 8 MG, UNK
  5. TERIPARATIDE [Suspect]
     Indication: OSTEOPOROSIS POSTMENOPAUSAL
     Dosage: UNK
     Route: 058
     Dates: start: 20101001
  6. ESOMEPRAZOLE SODIUM [Concomitant]
  7. CLONAZEPAM [Concomitant]
     Dosage: 0.5 MG, BID

REACTIONS (5)
  - SPINAL FRACTURE [None]
  - PAIN [None]
  - UROSEPSIS [None]
  - INTERVERTEBRAL DISCITIS [None]
  - MOVEMENT DISORDER [None]
